FAERS Safety Report 7409938-4 (Version None)
Quarter: 2011Q2

REPORT INFORMATION
  Report Type: 
  Country: None (occurrence: None)
  Receive Date: 20110412
  Receipt Date: 20110405
  Transmission Date: 20111010
  Serious: Yes (Life-Threatening, Hospitalization, Other)
  Sender: FDA-Public Use
  Company Number: PHHY2011US28629

PATIENT
  Age: 41 Year
  Sex: Male

DRUGS (6)
  1. SANDIMMUNE [Suspect]
  2. SOLIRIS [Suspect]
     Indication: PAROXYSMAL NOCTURNAL HAEMOGLOBINURIA
     Dosage: UNK
     Dates: start: 20110311
  3. STEROIDS NOS [Concomitant]
  4. DEFEROXAMINE MESYLATE [Concomitant]
  5. PREDONINE [Concomitant]
  6. DEFERASIROX [Concomitant]

REACTIONS (15)
  - ANAEMIA [None]
  - SERUM FERRITIN INCREASED [None]
  - DIABETES MELLITUS [None]
  - FEELING ABNORMAL [None]
  - LUNG DISORDER [None]
  - DEHYDRATION [None]
  - ASTHENIA [None]
  - LEUKOPENIA [None]
  - SWELLING FACE [None]
  - VISUAL IMPAIRMENT [None]
  - INFECTION [None]
  - RENAL FAILURE [None]
  - BLOOD LACTATE DEHYDROGENASE INCREASED [None]
  - HYPOACUSIS [None]
  - ERYTHEMA [None]
